FAERS Safety Report 23423110 (Version 1)
Quarter: 2024Q1

REPORT INFORMATION
  Report Type: Spontaneous
  Country: CL (occurrence: CL)
  Receive Date: 20240119
  Receipt Date: 20240119
  Transmission Date: 20240410
  Serious: Yes (Hospitalization)
  Sender: FDA-Public Use
  Company Number: CL-PFIZER INC-PV202300191687

PATIENT
  Age: 46 Year
  Sex: Female

DRUGS (1)
  1. NURTEC ODT [Suspect]
     Active Substance: RIMEGEPANT SULFATE
     Indication: Migraine
     Dosage: 75 MG, ALTERNATE DAY
     Dates: start: 20231118

REACTIONS (4)
  - Drug ineffective [Unknown]
  - Headache [Unknown]
  - Nasopharyngitis [Unknown]
  - Malaise [Unknown]
